FAERS Safety Report 9768547 (Version 2)
Quarter: 2013Q4

REPORT INFORMATION
  Report Type: Report from Study
  Country: US (occurrence: US)
  Receive Date: 20131217
  Receipt Date: 20131217
  Transmission Date: 20140711
  Serious: Yes (Congenital Anomaly, Other)
  Sender: FDA-Public Use
  Company Number: US-MYLANLABS-2008S1011999

PATIENT
  Age: 38 Year
  Sex: Female

DRUGS (4)
  1. ZIDOVUDINE [Suspect]
     Indication: HIV TEST POSITIVE
     Route: 048
     Dates: start: 200709, end: 20080401
  2. NORVIR [Suspect]
     Indication: HIV TEST POSITIVE
     Route: 048
     Dates: start: 20080401
  3. REYATAZ [Suspect]
     Indication: HIV TEST POSITIVE
     Route: 048
     Dates: start: 200709
  4. TRUVADA [Suspect]
     Indication: HIV TEST POSITIVE
     Route: 048
     Dates: start: 200709

REACTIONS (5)
  - Abortion induced [Recovered/Resolved]
  - Hydrocephalus [Recovered/Resolved]
  - Foetal cardiac disorder [Recovered/Resolved]
  - Exposure during pregnancy [Recovered/Resolved]
  - Drug dispensing error [Recovered/Resolved]
